FAERS Safety Report 4976859-6 (Version None)
Quarter: 2006Q2

REPORT INFORMATION
  Report Type: 
  Country: None (occurrence: None)
  Receive Date: 20060413
  Receipt Date: 20060405
  Transmission Date: 20061013
  Serious: Yes (Hospitalization, Other)
  Sender: FDA-Public Use
  Company Number: 2006031753

PATIENT
  Age: 45 Year
  Sex: Female

DRUGS (11)
  1. NEURONTIN [Suspect]
     Indication: ILL-DEFINED DISORDER
  2. SKELAXIN [Concomitant]
  3. ZANAFLEX [Concomitant]
  4. PREMARIN [Concomitant]
  5. AMITRIPTYLINE (AMITRIPTYLINE) [Concomitant]
  6. XANAX [Concomitant]
  7. HYDROCODONE BITARTRATE [Concomitant]
  8. PAXIL [Concomitant]
  9. CELEXA [Concomitant]
  10. DEPAKOTE [Concomitant]
  11. TRAZODONE HCL [Concomitant]

REACTIONS (8)
  - ANXIETY DISORDER [None]
  - MAJOR DEPRESSION [None]
  - MALNUTRITION [None]
  - MULTIPLE DRUG OVERDOSE [None]
  - OFF LABEL USE [None]
  - PARTNER STRESS [None]
  - SUICIDAL IDEATION [None]
  - SUICIDE ATTEMPT [None]
